FAERS Safety Report 11267177 (Version 1)
Quarter: 2015Q3

REPORT INFORMATION
  Report Type: Report from Study
  Country: RO (occurrence: RO)
  Receive Date: 20150713
  Receipt Date: 20150713
  Transmission Date: 20151125
  Serious: Yes (Hospitalization)
  Sender: FDA-Public Use
  Company Number: RO-ABBVIE-15P-135-1423590-00

PATIENT
  Age: 49 Year
  Sex: Male

DRUGS (2)
  1. MADOPAR HBS [Concomitant]
     Active Substance: BENSERAZIDE HYDROCHLORIDE\LEVODOPA
     Indication: PARKINSON^S DISEASE
     Route: 048
  2. DUODOPA [Suspect]
     Active Substance: CARBIDOPA\LEVODOPA
     Indication: PARKINSON^S DISEASE
     Dosage: MD 7 ML, CR 4 ML/H, ED 2.2 ML; 16/24 H
     Route: 050
     Dates: start: 20150616

REACTIONS (3)
  - Pyrexia [Recovered/Resolved]
  - Confusional state [Recovered/Resolved]
  - Necrobiosis lipoidica diabeticorum [Recovered/Resolved]

NARRATIVE: CASE EVENT DATE: 20150618
